FAERS Safety Report 5368594-X (Version None)
Quarter: 2007Q2

REPORT INFORMATION
  Report Type: 
  Country: None (occurrence: None)
  Receive Date: 20070620
  Receipt Date: 20070608
  Transmission Date: 20071010
  Serious: Yes (Life-Threatening, Hospitalization, Disabling, Other)
  Sender: FDA-Public Use
  Company Number: GXKR2007GB05016

PATIENT
  Age: 77 Year
  Sex: Female

DRUGS (6)
  1. ASPIRIN [Suspect]
     Indication: MYOCARDIAL ISCHAEMIA
     Dosage: 150 MG, QD, ORAL
     Route: 048
     Dates: start: 19990101, end: 20070523
  2. AMLODIPINE [Concomitant]
  3. FLUVASTATIN [Concomitant]
  4. FUCIDINE CAP [Concomitant]
  5. GAVISCON (ALGINIC ACID, ALUMINIUM HYDROXIDE GEL, DRIED, MAGNESIUM TRIS [Concomitant]
  6. RAMIPRIL [Concomitant]

REACTIONS (1)
  - SUBDURAL HAEMATOMA [None]
